FAERS Safety Report 7936026-0 (Version None)
Quarter: 2011Q4

REPORT INFORMATION
  Report Type: 
  Country: None (occurrence: None)
  Receive Date: 20111123
  Receipt Date: 20111115
  Transmission Date: 20120403
  Serious: Yes (Hospitalization)
  Sender: FDA-Public Use
  Company Number: IE-US-EMD SERONO, INC.-7031776

PATIENT
  Sex: Female

DRUGS (2)
  1. REBIF [Suspect]
     Indication: RELAPSING-REMITTING MULTIPLE SCLEROSIS
     Dates: start: 20070903, end: 20080125
  2. REBIF [Suspect]
     Dates: start: 20090826

REACTIONS (8)
  - WRONG TECHNIQUE IN DRUG USAGE PROCESS [None]
  - FATIGUE [None]
  - MULTIPLE SCLEROSIS RELAPSE [None]
  - INJECTION SITE LACERATION [None]
  - ABDOMINAL DISCOMFORT [None]
  - HEADACHE [None]
  - INJECTION SITE PAIN [None]
  - MUSCLE SPASMS [None]
